FAERS Safety Report 10101981 (Version 2)
Quarter: 2014Q2

REPORT INFORMATION
  Report Type: Spontaneous
  Country: BR (occurrence: BR)
  Receive Date: 20140424
  Receipt Date: 20140424
  Transmission Date: 20141212
  Serious: Yes (Other)
  Sender: FDA-Public Use
  Company Number: BR-SANOFI-AVENTIS-2013SA046076

PATIENT
  Age: 32 Year
  Sex: Female
  Weight: 62 kg

DRUGS (2)
  1. CLEXANE [Suspect]
     Indication: GENE MUTATION
     Route: 065
     Dates: start: 20130430
  2. CLEXANE [Suspect]
     Indication: PLACENTAL INFARCTION
     Route: 065
     Dates: start: 20130430

REACTIONS (2)
  - Amniotic fluid volume decreased [Unknown]
  - Exposure during pregnancy [Unknown]
